FAERS Safety Report 5713744-6 (Version None)
Quarter: 2008Q2

REPORT INFORMATION
  Report Type: 
  Country: None (occurrence: None)
  Receive Date: 20080421
  Receipt Date: 20080414
  Transmission Date: 20081010
  Serious: Yes (Death)
  Sender: FDA-Public Use
  Company Number: 163-21880-08041053

PATIENT
  Age: 77 Year
  Sex: Male

DRUGS (3)
  1. REVLIMID [Suspect]
     Indication: MULTIPLE MYELOMA
     Dosage: DAILY X21 DAYS EVERY 28 DAYS, ORAL; 12.5 MG, 1 IN 2 D, ORAL; 10 MG, 1 IN 1 D, ORAL
     Route: 048
     Dates: start: 20071019, end: 20071101
  2. REVLIMID [Suspect]
     Indication: MULTIPLE MYELOMA
     Dosage: DAILY X21 DAYS EVERY 28 DAYS, ORAL; 12.5 MG, 1 IN 2 D, ORAL; 10 MG, 1 IN 1 D, ORAL
     Route: 048
     Dates: start: 20071116, end: 20071201
  3. REVLIMID [Suspect]
     Indication: MULTIPLE MYELOMA
     Dosage: DAILY X21 DAYS EVERY 28 DAYS, ORAL; 12.5 MG, 1 IN 2 D, ORAL; 10 MG, 1 IN 1 D, ORAL
     Route: 048
     Dates: start: 20080115

REACTIONS (1)
  - MUSCLE SPASMS [None]
